FAERS Safety Report 4616081-6 (Version None)
Quarter: 2005Q1

REPORT INFORMATION
  Report Type: 
  Country: None (occurrence: None)
  Receive Date: 20050323
  Receipt Date: 20041228
  Transmission Date: 20050727
  Serious: Yes (Other)
  Sender: FDA-Public Use
  Company Number: PHEH2004US13694

PATIENT
  Age: 33 Year
  Sex: Male

DRUGS (2)
  1. PREVACID [Concomitant]
  2. ZELNORM [Suspect]
     Indication: CONSTIPATION
     Dosage: 6 MG, QD
     Dates: start: 20041201, end: 20041201

REACTIONS (7)
  - ABDOMINAL PAIN [None]
  - BACK PAIN [None]
  - CHEST PAIN [None]
  - DIZZINESS [None]
  - DRUG INEFFECTIVE [None]
  - RECTAL HAEMORRHAGE [None]
  - RENAL PAIN [None]
